FAERS Safety Report 6481651-X (Version None)
Quarter: 2009Q4

REPORT INFORMATION
  Report Type: 
  Country: None (occurrence: None)
  Receive Date: 20091208
  Receipt Date: 20091130
  Transmission Date: 20100525
  Serious: Yes (Other)
  Sender: FDA-Public Use
  Company Number: DE-ELI_LILLY_AND_COMPANY-DE200906006963

PATIENT
  Age: 70 Year
  Sex: Female

DRUGS (1)
  1. FORTEO [Suspect]
     Indication: OSTEOPOROSIS

REACTIONS (7)
  - ANGINA PECTORIS [None]
  - ASTHENIA [None]
  - BURNING SENSATION [None]
  - FATIGUE [None]
  - HAEMATOCHEZIA [None]
  - HYPOTENSION [None]
  - OEDEMA PERIPHERAL [None]
